FAERS Safety Report 4495346-5 (Version None)
Quarter: 2004Q4

REPORT INFORMATION
  Report Type: 
  Country: None (occurrence: None)
  Receive Date: 20041103
  Receipt Date: 20041021
  Transmission Date: 20050328
  Serious: Yes (Life-Threatening, Hospitalization)
  Sender: FDA-Public Use
  Company Number: 2004-BP-07912BP

PATIENT
  Age: 24 Year
  Sex: Female

DRUGS (2)
  1. VIRAMUNE [Suspect]
     Indication: PROPHYLAXIS AGAINST HIV INFECTION
     Dosage: (1 BID), PO
     Route: 048
  2. COMBIVIR [Suspect]
     Indication: HIV INFECTION
     Dosage: (1 BID), PO
     Route: 048

REACTIONS (12)
  - ANAEMIA [None]
  - BLOOD BILIRUBIN INCREASED [None]
  - BLOOD PRESSURE DECREASED [None]
  - BODY TEMPERATURE DECREASED [None]
  - COMPLICATION OF DELIVERY [None]
  - CONDITION AGGRAVATED [None]
  - DRUG EXPOSURE DURING PREGNANCY [None]
  - FATIGUE [None]
  - HAEMOGLOBIN DECREASED [None]
  - HAEMORRHAGE [None]
  - HEADACHE [None]
  - THERAPEUTIC AGENT TOXICITY [None]
